FAERS Safety Report 20773054 (Version 1)
Quarter: 2022Q2

REPORT INFORMATION
  Report Type: Spontaneous
  Country: US (occurrence: None)
  Receive Date: 20220429
  Receipt Date: 20220429
  Transmission Date: 20220720
  Serious: No
  Sender: FDA-Public Use
  Company Number: None

PATIENT
  Age: 45 Year
  Sex: Female
  Weight: 118.84 kg

DRUGS (2)
  1. DULOXETINE [Suspect]
     Active Substance: DULOXETINE
     Dosage: OTHER FREQUENCY1QAM 2QHS;?
     Route: 048
  2. DULOXETINE [Suspect]
     Active Substance: DULOXETINE
     Dosage: OTHER FREQUENCY1 QAM 2QHS;?
     Route: 048

REACTIONS (2)
  - Therapeutic response changed [None]
  - Therapy non-responder [None]
